FAERS Safety Report 22273272 (Version 1)
Quarter: 2023Q2

REPORT INFORMATION
  Report Type: Spontaneous
  Country: NL (occurrence: NL)
  Receive Date: 20230502
  Receipt Date: 20230502
  Transmission Date: 20230721
  Serious: Yes (Other)
  Sender: FDA-Public Use
  Company Number: NL-SUN PHARMACEUTICAL INDUSTRIES LTD-2022R1-359757

PATIENT
  Age: 65 Year
  Sex: Female

DRUGS (3)
  1. SULFASALAZINE [Suspect]
     Active Substance: SULFASALAZINE
     Indication: Colitis ulcerative
     Dosage: UNK
     Route: 065
  2. MESALAMINE [Suspect]
     Active Substance: MESALAMINE
     Indication: Colitis ulcerative
     Dosage: UNK (1200 MG)
     Route: 048
  3. MESALAMINE [Suspect]
     Active Substance: MESALAMINE
     Indication: Drug provocation test

REACTIONS (2)
  - Severe cutaneous adverse reaction [Unknown]
  - Dermatitis [Unknown]

NARRATIVE: CASE EVENT DATE: 19850101
